FAERS Safety Report 8921967 (Version 1)
Quarter: 2012Q4

REPORT INFORMATION
  Report Type: Spontaneous
  Country: US (occurrence: None)
  Receive Date: 20121119
  Receipt Date: 20121119
  Transmission Date: 20130627
  Serious: Yes (Death)
  Sender: FDA-Public Use
  Company Number: None

PATIENT
  Age: 71 Year
  Sex: Male
  Weight: 107.96 kg

DRUGS (1)
  1. RIVAROXABAN [Suspect]
     Indication: DEEP VENOUS THROMBOSIS PROPHYLAXIS
     Dosage: 10mg Daily po
     Route: 048
     Dates: start: 20121112, end: 20121113

REACTIONS (2)
  - Respiratory arrest [None]
  - Pulmonary embolism [None]
